FAERS Safety Report 21610367 (Version 2)
Quarter: 2023Q1

REPORT INFORMATION
  Report Type: Other
  Country: US (occurrence: US)
  Receive Date: 20221117
  Receipt Date: 20230112
  Transmission Date: 20230418
  Serious: Yes (Hospitalization)
  Sender: FDA-Public Use
  Company Number: US-DECIPHERA PHARMACEUTICALS LLC-2022US000953

PATIENT
  Sex: Female

DRUGS (2)
  1. QINLOCK [Suspect]
     Active Substance: RIPRETINIB
     Indication: Gastrointestinal stromal tumour
     Dosage: 150 MILLIGRAM, QD
     Route: 048
     Dates: start: 20220611, end: 20221224
  2. QINLOCK [Suspect]
     Active Substance: RIPRETINIB
     Dosage: 150 MILLIGRAM, QD
     Route: 048
     Dates: start: 20221226

REACTIONS (9)
  - Heavy menstrual bleeding [Recovered/Resolved]
  - Sensitive skin [Unknown]
  - Increased tendency to bruise [Unknown]
  - Contusion [Unknown]
  - Neoplasm progression [Unknown]
  - Skin atrophy [Unknown]
  - Drug resistance [Unknown]
  - Abdominal distension [Unknown]
  - Hyperkeratosis [Unknown]
